FAERS Safety Report 24894936 (Version 2)
Quarter: 2025Q1

REPORT INFORMATION
  Report Type: Spontaneous
  Country: GB (occurrence: GB)
  Receive Date: 20250128
  Receipt Date: 20250131
  Transmission Date: 20250409
  Serious: Yes (Hospitalization)
  Sender: TEVA
  Company Number: GB-STRIDES ARCOLAB LIMITED-2025SP000902

PATIENT
  Sex: Female

DRUGS (1)
  1. PREDNISOLONE [Suspect]
     Active Substance: PREDNISOLONE
     Indication: Systemic lupus erythematosus
     Route: 065

REACTIONS (2)
  - Hallucination [Recovered/Resolved]
  - Substance-induced psychotic disorder [Recovered/Resolved]
